FAERS Safety Report 13789698 (Version 1)
Quarter: 2017Q3

REPORT INFORMATION
  Report Type: Spontaneous
  Country: US (occurrence: US)
  Receive Date: 20170725
  Receipt Date: 20170725
  Transmission Date: 20171127
  Serious: No
  Sender: FDA-Public Use
  Company Number: US-UNITED THERAPEUTICS-UNT-2017-006071

PATIENT
  Sex: Male
  Weight: 111.11 kg

DRUGS (5)
  1. ORENITRAM [Suspect]
     Active Substance: TREPROSTINIL
     Indication: PULMONARY ARTERIAL HYPERTENSION
     Dosage: 1.25 MG, BID
     Route: 048
     Dates: start: 20170320
  2. LETAIRIS [Concomitant]
     Active Substance: AMBRISENTAN
     Indication: PRODUCT USED FOR UNKNOWN INDICATION
  3. ORENITRAM [Suspect]
     Active Substance: TREPROSTINIL
     Dosage: UNK
     Route: 048
  4. ORENITRAM [Suspect]
     Active Substance: TREPROSTINIL
     Dosage: 1.5 MG, BID
     Route: 048
  5. XARELTO [Concomitant]
     Active Substance: RIVAROXABAN
     Indication: PRODUCT USED FOR UNKNOWN INDICATION

REACTIONS (4)
  - Vomiting [Unknown]
  - Abdominal pain upper [Unknown]
  - Malaise [Unknown]
  - Nausea [Unknown]
